FAERS Safety Report 23685361 (Version 1)
Quarter: 2024Q1

REPORT INFORMATION
  Report Type: Spontaneous
  Country: US (occurrence: US)
  Receive Date: 20240329
  Receipt Date: 20240329
  Transmission Date: 20240410
  Serious: Yes (Hospitalization)
  Sender: FDA-Public Use
  Company Number: US-JNJFOC-20240360011

PATIENT
  Age: 38 Year
  Sex: Female

DRUGS (3)
  1. SPRAVATO [Suspect]
     Active Substance: ESKETAMINE
     Indication: Depression
     Dosage: ^56 MG, 1 TOTAL DOSE^
     Dates: start: 20231130, end: 20231130
  2. SPRAVATO [Suspect]
     Active Substance: ESKETAMINE
     Dosage: ^84 MG, 14 TOTAL DOSES^
     Dates: start: 20231204, end: 20240301
  3. SPRAVATO [Suspect]
     Active Substance: ESKETAMINE
     Dosage: ^UNSPECIFIED DOSE, 1 TOTAL DOSE^
     Dates: end: 20240320

REACTIONS (2)
  - Psychotic symptom [Unknown]
  - Vomiting [Unknown]

NARRATIVE: CASE EVENT DATE: 20240320
